FAERS Safety Report 19963441 (Version 15)
Quarter: 2022Q4

REPORT INFORMATION
  Report Type: Other
  Country: AE (occurrence: None)
  Receive Date: 20211018
  Receipt Date: 20221215
  Transmission Date: 20230113
  Serious: Yes (Hospitalization, Other)
  Sender: FDA-Public Use
  Company Number: AE-ROCHE-2933971

PATIENT
  Age: 57 Year
  Sex: Female

DRUGS (1)
  1. AVASTIN [Suspect]
     Active Substance: BEVACIZUMAB
     Indication: Ovarian cancer
     Route: 042
     Dates: start: 20210901

REACTIONS (3)
  - Hernia obstructive [Unknown]
  - Abscess [Unknown]
  - Wound [Not Recovered/Not Resolved]
